FAERS Safety Report 15883332 (Version 1)
Quarter: 2019Q1

REPORT INFORMATION
  Report Type: Spontaneous
  Country: US (occurrence: US)
  Receive Date: 20190128
  Receipt Date: 20190128
  Transmission Date: 20190417
  Serious: Yes (Hospitalization, Other)
  Sender: FDA-Public Use
  Company Number: None

PATIENT
  Age: 74 Year
  Sex: Male
  Weight: 74.25 kg

DRUGS (13)
  1. CALCIUM CITRATE [Concomitant]
     Active Substance: CALCIUM CITRATE
  2. MULTIVITAMIN-IRON-FA-CALCIUM-MINERALS (THERAPEUTIC-M) [Concomitant]
  3. THYROID, PORK (NP THYROID) [Concomitant]
  4. CUBICIN [Suspect]
     Active Substance: DAPTOMYCIN
     Indication: STAPHYLOCOCCAL INFECTION
     Dosage: ?          QUANTITY:500 INJECTION(S);?
     Route: 042
     Dates: start: 20181126, end: 20181216
  5. MINOCIN [Concomitant]
     Active Substance: MINOCYCLINE HYDROCHLORIDE
  6. RIFAMPIN (RIFADIN) [Concomitant]
  7. FOSAMAX [Concomitant]
     Active Substance: ALENDRONATE SODIUM
  8. CULTURELLE [Concomitant]
     Active Substance: LACTOBACILLUS RHAMNOSUS
  9. ASPIRIN (ECOTRIN LOW STRENGTH) [Concomitant]
  10. SILDENAFIL (REVATIO) [Concomitant]
  11. DELTASONE [Concomitant]
     Active Substance: PREDNISONE
  12. LIPITOR [Concomitant]
     Active Substance: ATORVASTATIN CALCIUM
  13. IRON [Concomitant]
     Active Substance: IRON

REACTIONS (5)
  - Chest X-ray abnormal [None]
  - Pyrexia [None]
  - Cough [None]
  - Feeling abnormal [None]
  - White blood cell count decreased [None]

NARRATIVE: CASE EVENT DATE: 20181216
